FAERS Safety Report 8390777-5 (Version None)
Quarter: 2012Q2

REPORT INFORMATION
  Report Type: 
  Country: None (occurrence: None)
  Receive Date: 20120529
  Receipt Date: 20120518
  Transmission Date: 20120825
  Serious: Yes (Hospitalization)
  Sender: FDA-Public Use
  Company Number: US-VERTEX PHARMACEUTICALS INC.-AE-2012-007565

PATIENT
  Sex: Male

DRUGS (3)
  1. RIBAVIRIN [Concomitant]
     Indication: HEPATITIS C
     Dates: start: 20111111, end: 20120427
  2. PEGASYS [Concomitant]
     Indication: HEPATITIS C
     Dates: start: 20111111, end: 20120427
  3. INCIVEK [Suspect]
     Indication: HEPATITIS C
     Dates: start: 20111111, end: 20120203

REACTIONS (3)
  - WHITE BLOOD CELL COUNT DECREASED [None]
  - LUNG NEOPLASM MALIGNANT [None]
  - ANAEMIA [None]
